FAERS Safety Report 18065564 (Version 3)
Quarter: 2022Q2

REPORT INFORMATION
  Report Type: Spontaneous
  Country: CA (occurrence: CA)
  Receive Date: 20200724
  Receipt Date: 20220511
  Transmission Date: 20220721
  Serious: Yes (Other)
  Sender: FDA-Public Use
  Company Number: None

PATIENT
  Sex: Female

DRUGS (23)
  1. AMLODIPINE BESYLATE [Interacting]
     Active Substance: AMLODIPINE BESYLATE
     Indication: Product used for unknown indication
     Dosage: 1 EVERY 1 DAYS
     Route: 065
  2. ARIPIPRAZOLE [Interacting]
     Active Substance: ARIPIPRAZOLE
     Indication: Product used for unknown indication
     Route: 065
  3. CLOZAPINE [Interacting]
     Active Substance: CLOZAPINE
     Indication: Product used for unknown indication
     Dosage: 1 EVERY 1 DAYS
     Route: 065
  4. CLOTRIMAZOLE [Interacting]
     Active Substance: CLOTRIMAZOLE
     Indication: Rash
     Dosage: 2 EVERY 1 DAYS
     Route: 065
  5. OLANZAPINE [Interacting]
     Active Substance: OLANZAPINE
     Indication: Mood altered
     Dosage: 2 EVERY 1 DAYS
     Route: 065
  6. ESTRADIOL [Interacting]
     Active Substance: ESTRADIOL
     Indication: Product used for unknown indication
     Route: 067
  7. BREXPIPRAZOLE [Interacting]
     Active Substance: BREXPIPRAZOLE
     Indication: Product used for unknown indication
     Route: 065
  8. ACETAMINOPHEN [Interacting]
     Active Substance: ACETAMINOPHEN
     Indication: Pyrexia
     Route: 065
  9. ALUMINUM HYDROXIDE\MAGNESIUM HYDROXIDE [Interacting]
     Active Substance: ALUMINUM HYDROXIDE\MAGNESIUM HYDROXIDE
     Indication: Abdominal discomfort
     Route: 048
  10. RANITIDINE [Interacting]
     Active Substance: RANITIDINE
     Indication: Product used for unknown indication
     Dosage: 2 EVERY 1 DAYS
     Route: 065
  11. INFLUENZA VIRUS VACCINE [Interacting]
     Active Substance: INFLUENZA VIRUS VACCINE
     Indication: Product used for unknown indication
     Dosage: 0.2ML PREFILLED, SINGLE-USE GLASS SPRAYER
     Route: 065
  12. LEVOTHYROXINE SODIUM [Interacting]
     Active Substance: LEVOTHYROXINE SODIUM
     Indication: Product used for unknown indication
     Route: 065
  13. ZOPICLONE [Interacting]
     Active Substance: ZOPICLONE
     Indication: Insomnia
     Dosage: 1 EVERY 1 DAYS
     Route: 065
  14. PREMARIN [Interacting]
     Active Substance: ESTROGENS, CONJUGATED
     Indication: Product used for unknown indication
     Route: 061
  15. DIVALPROEX SODIUM [Interacting]
     Active Substance: DIVALPROEX SODIUM
     Indication: Product used for unknown indication
     Dosage: 2 EVERY 1 DAYS
     Route: 065
  16. VITAMIN D3 [Interacting]
     Active Substance: CHOLECALCIFEROL
     Indication: Product used for unknown indication
     Route: 065
  17. DIVALPROEX SODIUM [Interacting]
     Active Substance: DIVALPROEX SODIUM
     Indication: Product used for unknown indication
     Dosage: 2 EVERY 1 DAYS
  18. FLUVIRAL [Interacting]
     Active Substance: INFLUENZA VIRUS VACCINE
     Indication: Product used for unknown indication
     Route: 030
  19. ESTRADIOL [Interacting]
     Active Substance: ESTRADIOL
     Indication: Product used for unknown indication
     Route: 067
  20. MAALOX ANTACID [Interacting]
     Active Substance: ALUMINUM HYDROXIDE\DIMETHICONE\MAGNESIUM HYDROXIDE
     Indication: Abdominal discomfort
     Dosage: 30.0 MILLIGRAM/ MILLILITER
     Route: 048
  21. BREXPIPRAZOLE [Interacting]
     Active Substance: BREXPIPRAZOLE
     Indication: Product used for unknown indication
  22. ACETAMINOPHEN\CAFFEINE [Interacting]
     Active Substance: ACETAMINOPHEN\CAFFEINE
     Indication: Pyrexia
  23. ALMAGATE [Interacting]
     Active Substance: ALMAGATE
     Indication: Abdominal discomfort
     Route: 048

REACTIONS (4)
  - Electrocardiogram QT prolonged [Unknown]
  - Drug level increased [Unknown]
  - Drug interaction [Unknown]
  - Schizoaffective disorder [Unknown]
